FAERS Safety Report 25025304 (Version 3)
Quarter: 2025Q3

REPORT INFORMATION
  Report Type: Spontaneous
  Country: US (occurrence: US)
  Receive Date: 20250228
  Receipt Date: 20250908
  Transmission Date: 20251021
  Serious: No
  Sender: PFIZER
  Company Number: US-PFIZER INC-PV202300092161

PATIENT
  Age: 72 Year
  Sex: Female

DRUGS (14)
  1. XELJANZ XR [Suspect]
     Active Substance: TOFACITINIB CITRATE
  2. TRIAMTERENE [Concomitant]
     Active Substance: TRIAMTERENE
  3. ALBUTEROL SULFATE [Concomitant]
     Active Substance: ALBUTEROL SULFATE
  4. ZYRTEC [Concomitant]
     Active Substance: CETIRIZINE HYDROCHLORIDE
  5. JARDIANCE [Concomitant]
     Active Substance: EMPAGLIFLOZIN
  6. FLONASE [Concomitant]
     Active Substance: FLUTICASONE PROPIONATE
  7. BREO ELLIPTA [Concomitant]
     Active Substance: FLUTICASONE FUROATE\VILANTEROL TRIFENATATE
  8. NEURONTIN [Concomitant]
     Active Substance: GABAPENTIN
  9. HUMULIN NOS [Concomitant]
     Active Substance: INSULIN HUMAN
  10. LEVOTHYROXINE [Concomitant]
     Active Substance: LEVOTHYROXINE
  11. LOSARTAN POTASSIUM [Concomitant]
     Active Substance: LOSARTAN POTASSIUM
  12. METFORMIN HYDROCHLORIDE [Concomitant]
     Active Substance: METFORMIN HYDROCHLORIDE
  13. MONTELUKAST [Concomitant]
     Active Substance: MONTELUKAST
  14. OZEMPIC [Concomitant]
     Active Substance: SEMAGLUTIDE

REACTIONS (6)
  - Illness [Unknown]
  - Dizziness [Unknown]
  - Rash [Unknown]
  - Blood cholesterol abnormal [Unknown]
  - Nasopharyngitis [Unknown]
  - Hypotension [Unknown]

NARRATIVE: CASE EVENT DATE: 20250201
